FAERS Safety Report 19409252 (Version 2)
Quarter: 2021Q2

REPORT INFORMATION
  Report Type: Spontaneous
  Country: US (occurrence: US)
  Receive Date: 20210614
  Receipt Date: 20210625
  Transmission Date: 20210717
  Serious: Yes (Hospitalization, Other)
  Sender: FDA-Public Use
  Company Number: US-ACCORD-227585

PATIENT
  Age: 78 Year
  Sex: Female

DRUGS (1)
  1. LETROZOLE. [Suspect]
     Active Substance: LETROZOLE
     Indication: INVASIVE LOBULAR BREAST CARCINOMA
     Dosage: 2.5 MG ORALLY
     Route: 048

REACTIONS (8)
  - Fatigue [Recovering/Resolving]
  - Depression [Recovering/Resolving]
  - Malaise [Recovering/Resolving]
  - Affective disorder [Recovering/Resolving]
  - Recall phenomenon [Recovered/Resolved]
  - Nausea [Recovering/Resolving]
  - Cellulitis [Unknown]
  - Alopecia [Recovering/Resolving]
